FAERS Safety Report 20708797 (Version 1)
Quarter: 2022Q2

REPORT INFORMATION
  Report Type: Other
  Country: US (occurrence: None)
  Receive Date: 20220414
  Receipt Date: 20220414
  Transmission Date: 20220721
  Serious: Yes (Hospitalization, Other)
  Sender: FDA-Public Use
  Company Number: US-ROCHE-3073071

PATIENT
  Sex: Male

DRUGS (2)
  1. XELODA [Suspect]
     Active Substance: CAPECITABINE
     Indication: Carcinoid tumour of the small bowel
     Dosage: TAKE 2 TABLET(S) BY MOUTH TWICE A DAY FOR 14 DAYS THEN 14 DAYS OFF
     Route: 048
  2. XELODA [Suspect]
     Active Substance: CAPECITABINE
     Dosage: TAKE 2 TABLET(S) BY MOUTH TWICE A DAY FOR 14 DAYS THEN 14 DAYS OFF
     Route: 048

REACTIONS (2)
  - Malignant neoplasm progression [Unknown]
  - Intestinal obstruction [Unknown]
